FAERS Safety Report 4392111-4 (Version None)
Quarter: 2004Q3

REPORT INFORMATION
  Report Type: 
  Country: None (occurrence: None)
  Receive Date: 20040702
  Receipt Date: 20040312
  Transmission Date: 20050211
  Serious: Yes (Other)
  Sender: FDA-Public Use
  Company Number: 2004UW04801

PATIENT
  Age: 55 Year
  Sex: Female
  Weight: 92.5338 kg

DRUGS (9)
  1. CRESTOR [Suspect]
     Indication: BLOOD CHOLESTEROL INCREASED
     Dosage: 10 MG PO
     Route: 048
     Dates: start: 20040201
  2. CRESTOR [Suspect]
     Indication: BLOOD TRIGLYCERIDES INCREASED
     Dosage: 10 MG PO
     Route: 048
     Dates: start: 20040201
  3. DIGOXIN [Concomitant]
  4. LOPRESSOR [Concomitant]
  5. XANAX [Concomitant]
  6. VITAMIN E [Concomitant]
  7. FUROSEMIDE [Concomitant]
  8. ROBAXIN [Concomitant]
  9. HYDROCODONE [Concomitant]

REACTIONS (1)
  - ALOPECIA [None]
